FAERS Safety Report 8998496 (Version 1)
Quarter: 2013Q1

REPORT INFORMATION
  Report Type: Spontaneous
  Country: FR (occurrence: FR)
  Receive Date: 20130103
  Receipt Date: 20130103
  Transmission Date: 20140127
  Serious: Yes (Other)
  Sender: FDA-Public Use
  Company Number: FR-TEVA-377836ISR

PATIENT
  Age: 53 Year
  Sex: Male

DRUGS (1)
  1. COPAXONE [Suspect]
     Dosage: 20 MILLIGRAM DAILY;
     Route: 058
     Dates: start: 2009

REACTIONS (6)
  - Discomfort [Recovered/Resolved]
  - Flushing [Recovered/Resolved]
  - Chest pain [Recovered/Resolved]
  - Anal sphincter atony [Recovered/Resolved]
  - Defaecation urgency [Recovered/Resolved]
  - Asthenia [Recovered/Resolved]
